FAERS Safety Report 24247810 (Version 1)
Quarter: 2024Q3

REPORT INFORMATION
  Report Type: Spontaneous
  Country: US (occurrence: US)
  Receive Date: 20240826
  Receipt Date: 20240826
  Transmission Date: 20241016
  Serious: Yes (Hospitalization)
  Sender: CSL BEHRING
  Company Number: US-BEH-2024177622

PATIENT
  Age: 61 Year
  Sex: Female

DRUGS (1)
  1. PRIVIGEN [Suspect]
     Active Substance: HUMAN IMMUNOGLOBULIN G
     Indication: Myasthenia gravis
     Dosage: 225 G, Q 6 WEEKS, PORT
     Route: 065

REACTIONS (2)
  - Benign neoplasm [Unknown]
  - Off label use [Unknown]

NARRATIVE: CASE EVENT DATE: 20240731
